FAERS Safety Report 24709009 (Version 1)
Quarter: 2024Q4

REPORT INFORMATION
  Report Type: Spontaneous
  Country: US (occurrence: US)
  Receive Date: 20241208
  Receipt Date: 20241208
  Transmission Date: 20250114
  Serious: Yes (Other)
  Sender: JOHNSON AND JOHNSON
  Company Number: US-JNJFOC-20241200169

PATIENT
  Sex: Male

DRUGS (5)
  1. RYBREVANT [Suspect]
     Active Substance: AMIVANTAMAB-VMJW
     Indication: Non-small cell lung cancer metastatic
     Route: 041
  2. DOXYCYCLINE [Concomitant]
     Active Substance: DOXYCYCLINE
  3. HYDROCORTISONE [Concomitant]
     Active Substance: HYDROCORTISONE
  4. CLOBETASOL [Concomitant]
     Active Substance: CLOBETASOL
  5. PREDNISONE [Concomitant]
     Active Substance: PREDNISONE

REACTIONS (1)
  - Rash [Unknown]
